FAERS Safety Report 7942376-4 (Version None)
Quarter: 2011Q4

REPORT INFORMATION
  Report Type: 
  Country: None (occurrence: None)
  Receive Date: 20111128
  Receipt Date: 20111117
  Transmission Date: 20120403
  Serious: Yes (Other)
  Sender: FDA-Public Use
  Company Number: ES-JNJFOC-20111109063

PATIENT
  Sex: Female

DRUGS (1)
  1. STELARA [Suspect]
     Indication: PSORIATIC ARTHROPATHY
     Route: 065

REACTIONS (2)
  - PSORIASIS [None]
  - OFF LABEL USE [None]
